FAERS Safety Report 6249563-4 (Version None)
Quarter: 2009Q2

REPORT INFORMATION
  Report Type: 
  Country: None (occurrence: None)
  Receive Date: 20090629
  Receipt Date: 20090618
  Transmission Date: 20091009
  Serious: Yes (Hospitalization)
  Sender: FDA-Public Use
  Company Number: US-JNJFOC-20090606964

PATIENT
  Sex: Male
  Weight: 128.6 kg

DRUGS (7)
  1. INFLIXIMAB [Suspect]
     Indication: CROHN'S DISEASE
     Route: 042
  2. 5-AMINOSALICYLIC ACID [Concomitant]
     Indication: INFLAMMATORY BOWEL DISEASE
     Route: 048
  3. SEROQUEL [Concomitant]
  4. COGENTIN [Concomitant]
  5. RISPERDAL [Concomitant]
  6. IMODIUM [Concomitant]
  7. ACIPHEX [Concomitant]

REACTIONS (1)
  - CROHN'S DISEASE [None]
